FAERS Safety Report 6345587-7 (Version None)
Quarter: 2009Q3

REPORT INFORMATION
  Report Type: 
  Country: None (occurrence: None)
  Receive Date: 20090909
  Receipt Date: 20090828
  Transmission Date: 20100115
  Serious: Yes (Disabling)
  Sender: FDA-Public Use
  Company Number: GB-CELGENEUS-167-20785-09090009

PATIENT
  Sex: Male

DRUGS (4)
  1. THALIDOMIDE [Suspect]
     Indication: MULTIPLE MYELOMA
     Route: 048
  2. THALIDOMIDE [Suspect]
     Dosage: REDUCED DOSE
     Route: 048
  3. VINCRISTINE [Concomitant]
     Indication: HODGKIN'S DISEASE
  4. VINBLASTINE [Concomitant]
     Indication: HODGKIN'S DISEASE

REACTIONS (2)
  - ERECTILE DYSFUNCTION [None]
  - NEUROMYOPATHY [None]
